FAERS Safety Report 18428654 (Version 2)
Quarter: 2020Q4

REPORT INFORMATION
  Report Type: Spontaneous
  Country: FR (occurrence: FR)
  Receive Date: 20201026
  Receipt Date: 20201117
  Transmission Date: 20210114
  Serious: Yes (Hospitalization)
  Sender: FDA-Public Use
  Company Number: FR-JNJFOC-20201021840

PATIENT
  Age: 65 Year
  Sex: Female
  Weight: 55 kg

DRUGS (3)
  1. SIMPONI [Suspect]
     Active Substance: GOLIMUMAB
     Indication: SPONDYLITIS
     Dosage: ; IN TOTAL
     Dates: start: 20200713, end: 20200713
  2. ADALIMUMAB [Suspect]
     Active Substance: ADALIMUMAB
     Indication: SPONDYLITIS
     Route: 058
     Dates: start: 202001, end: 202006
  3. PREDNISONE. [Suspect]
     Active Substance: PREDNISONE
     Indication: ACUTE FEBRILE NEUTROPHILIC DERMATOSIS
     Route: 048
     Dates: start: 202005, end: 20200804

REACTIONS (8)
  - Myocarditis [Recovering/Resolving]
  - Hypersensitivity vasculitis [Recovering/Resolving]
  - Renal vasculitis [Recovering/Resolving]
  - Pneumonia fungal [Recovered/Resolved]
  - Central nervous system vasculitis [Recovering/Resolving]
  - Pneumonia bacterial [Recovered/Resolved]
  - Product use in unapproved indication [Unknown]
  - Diffuse vasculitis [Recovering/Resolving]

NARRATIVE: CASE EVENT DATE: 202001
